FAERS Safety Report 10749270 (Version 4)
Quarter: 2016Q1

REPORT INFORMATION
  Report Type: Spontaneous
  Country: US (occurrence: US)
  Receive Date: 20150129
  Receipt Date: 20160307
  Transmission Date: 20160525
  Serious: No
  Sender: FDA-Public Use
  Company Number: US-PFIZER INC-2015032248

PATIENT
  Age: 68 Year
  Sex: Male

DRUGS (9)
  1. LEVAQUIN [Suspect]
     Active Substance: LEVOFLOXACIN
     Dosage: UNK
  2. VIBRAMYCIN [Suspect]
     Active Substance: DOXYCYCLINE
     Dosage: UNK
  3. DIFLUCAN [Suspect]
     Active Substance: FLUCONAZOLE
     Dosage: UNK
  4. ELOCON [Suspect]
     Active Substance: MOMETASONE FUROATE
     Dosage: UNK
  5. DOXYCYCLINE HYCLATE. [Suspect]
     Active Substance: DOXYCYCLINE HYCLATE
     Dosage: UNK
  6. HYDRALAZINE [Suspect]
     Active Substance: HYDRALAZINE HYDROCHLORIDE
     Dosage: UNK
  7. LISINOPRIL. [Suspect]
     Active Substance: LISINOPRIL
     Dosage: UNK
  8. VALSARTAN. [Suspect]
     Active Substance: VALSARTAN
     Dosage: UNK
  9. FELDENE [Suspect]
     Active Substance: PIROXICAM
     Indication: GOUT
     Dosage: 10 MG, 1X/DAY

REACTIONS (1)
  - Drug hypersensitivity [Recovered/Resolved]
